FAERS Safety Report 6403242-9 (Version None)
Quarter: 2009Q4

REPORT INFORMATION
  Report Type: 
  Country: None (occurrence: None)
  Receive Date: 20091016
  Receipt Date: 20091005
  Transmission Date: 20100525
  Serious: Yes (Life-Threatening)
  Sender: FDA-Public Use
  Company Number: GB-PFIZER INC-2009283171

PATIENT
  Age: 80 Year

DRUGS (3)
  1. HYDROXYZINE HCL [Suspect]
     Dosage: 25 MG, UNK
     Route: 048
     Dates: start: 20090830, end: 20090831
  2. FOLIC ACID [Concomitant]
     Dosage: 5 MG, 1X/DAY
     Route: 048
     Dates: start: 20040101
  3. METHOTREXATE [Concomitant]
     Indication: PSORIASIS
     Dosage: 25 MG, UNK
     Route: 048
     Dates: start: 20040101

REACTIONS (1)
  - ACUTE GENERALISED EXANTHEMATOUS PUSTULOSIS [None]
